APPROVED DRUG PRODUCT: METOPROLOL TARTRATE
Active Ingredient: METOPROLOL TARTRATE
Strength: 1MG/ML
Dosage Form/Route: INJECTABLE;INJECTION
Application: A090317 | Product #001
Applicant: ONESOURCE SPECIALTY PTE LTD
Approved: Apr 19, 2010 | RLD: No | RS: No | Type: DISCN